FAERS Safety Report 9886060 (Version 1)
Quarter: 2014Q1

REPORT INFORMATION
  Report Type: Spontaneous
  Country: US (occurrence: None)
  Receive Date: 20140207
  Receipt Date: 20140207
  Transmission Date: 20141002
  Serious: No
  Sender: FDA-Public Use
  Company Number: None

PATIENT
  Age: 13 Year
  Sex: Female

DRUGS (1)
  1. HUMATROPE [Suspect]
     Indication: DWARFISM
     Dosage: INJECT 1.6 MG UNDER THE SKIN 7 DAYS WEEKLY
     Dates: start: 20131010

REACTIONS (4)
  - Decreased appetite [None]
  - Abdominal pain [None]
  - Diarrhoea [None]
  - Convulsion [None]
